FAERS Safety Report 18166765 (Version 1)
Quarter: 2020Q3

REPORT INFORMATION
  Report Type: Spontaneous
  Country: DE (occurrence: DE)
  Receive Date: 20200819
  Receipt Date: 20200819
  Transmission Date: 20201103
  Serious: Yes (Hospitalization)
  Sender: FDA-Public Use
  Company Number: DE-TEVA-2020-DE-1815709

PATIENT
  Age: 68 Year
  Sex: Female

DRUGS (7)
  1. HUMALOG MIX25 100EINHEITEN/ML INJ.SUSP.PATRONEN 3ML [Concomitant]
     Dosage: BY VALUE, AMPOULES
     Route: 058
  2. AMLODIPIN [Suspect]
     Active Substance: AMLODIPINE BESYLATE
     Dosage: 20 MILLIGRAM DAILY; 1?0?1?0
     Route: 048
  3. TAMSULOSIN [Concomitant]
     Active Substance: TAMSULOSIN
     Dosage: .4 MILLIGRAM DAILY;  1?0?0?0
     Route: 048
  4. TORASEMID [Suspect]
     Active Substance: TORSEMIDE
     Dosage: 100 MG, 1?1?0.5?0
     Route: 048
  5. COLECALCIFEROL (VITAMIN D) [Concomitant]
     Dosage: 20,000 IU / WEEK, WEDNESDAYS
     Route: 048
  6. HUMALOG MIX25 100EINHEITEN/ML INJ.SUSP.PATRONEN 3ML [Concomitant]
     Dosage: BY VALUE, AMPOULES
     Route: 058
  7. BISOPROLOL [Concomitant]
     Active Substance: BISOPROLOL
     Dosage: 5 MILLIGRAM DAILY;  1?0?1?0
     Route: 048

REACTIONS (7)
  - Weight increased [Unknown]
  - Oedema peripheral [Unknown]
  - Fatigue [Unknown]
  - Dyspnoea [Unknown]
  - Wheezing [Unknown]
  - Tachypnoea [Unknown]
  - General physical health deterioration [Unknown]
